FAERS Safety Report 24055796 (Version 1)
Quarter: 2024Q3

REPORT INFORMATION
  Report Type: Spontaneous
  Country: CA (occurrence: CA)
  Receive Date: 20240705
  Receipt Date: 20240705
  Transmission Date: 20241017
  Serious: Yes (Hospitalization)
  Sender: TEVA
  Company Number: CA-TEVA-VS-3214681

PATIENT
  Age: 86 Year
  Sex: Male

DRUGS (2)
  1. TRAZODONE HYDROCHLORIDE [Suspect]
     Active Substance: TRAZODONE HYDROCHLORIDE
     Indication: Product used for unknown indication
     Route: 048
  2. PHENYTOIN [Interacting]
     Active Substance: PHENYTOIN
     Indication: Product used for unknown indication
     Route: 065

REACTIONS (6)
  - Tremor [Unknown]
  - Fall [Unknown]
  - Gait disturbance [Unknown]
  - Nystagmus [Unknown]
  - Toxicity to various agents [Unknown]
  - Drug interaction [Unknown]
